FAERS Safety Report 24648265 (Version 1)
Quarter: 2024Q4

REPORT INFORMATION
  Report Type: Spontaneous
  Country: BE (occurrence: BE)
  Receive Date: 20241121
  Receipt Date: 20241121
  Transmission Date: 20250115
  Serious: Yes (Hospitalization)
  Sender: BOEHRINGER INGELHEIM
  Company Number: BE-BoehringerIngelheim-2024-BI-064211

PATIENT
  Age: 88 Year
  Sex: Female

DRUGS (1)
  1. JARDIANCE [Suspect]
     Active Substance: EMPAGLIFLOZIN
     Indication: Heart failure with preserved ejection fraction
     Dosage: ONLY ONE DOSE RECEIVED PRIOR TO START OF ADVERSE EVENTS.

REACTIONS (3)
  - Respiratory distress [Unknown]
  - Pruritus [Unknown]
  - Hypersensitivity [Unknown]
